FAERS Safety Report 7983804-8 (Version None)
Quarter: 2011Q4

REPORT INFORMATION
  Report Type: 
  Country: None (occurrence: None)
  Receive Date: 20111216
  Receipt Date: 20111208
  Transmission Date: 20120403
  Serious: Yes (Other)
  Sender: FDA-Public Use
  Company Number: US-ACCORD-011547

PATIENT
  Age: 79 Year
  Sex: Female

DRUGS (2)
  1. ANASTROZOLE [Suspect]
     Indication: BREAST CANCER
  2. TRIAMTERENE [Concomitant]

REACTIONS (1)
  - TRANSIENT ACANTHOLYTIC DERMATOSIS [None]
